FAERS Safety Report 4334791-5 (Version None)
Quarter: 2004Q2

REPORT INFORMATION
  Report Type: 
  Country: None (occurrence: None)
  Receive Date: 20040407
  Receipt Date: 20040407
  Transmission Date: 20050107
  Serious: Yes (Hospitalization)
  Sender: FDA-Public Use
  Company Number: None

PATIENT
  Age: 67 Year
  Sex: Female

DRUGS (5)
  1. ZOMETA [Suspect]
     Indication: OSTEOLYSIS
     Dosage: 4MG IV X 1
     Route: 042
  2. THALIDOMIDE [Suspect]
     Indication: MULTIPLE MYELOMA
     Dosage: 200 MG PO QD
     Route: 048
  3. PREDNISONE [Concomitant]
  4. RISPERIDONE [Concomitant]
  5. DARBEPOETIN [Concomitant]

REACTIONS (1)
  - BLOOD CREATININE INCREASED [None]
